FAERS Safety Report 6149278-7 (Version None)
Quarter: 2009Q2

REPORT INFORMATION
  Report Type: 
  Country: None (occurrence: None)
  Receive Date: 20090409
  Receipt Date: 20090326
  Transmission Date: 20091009
  Serious: Yes (Hospitalization)
  Sender: FDA-Public Use
  Company Number: JP-ABBOTT-09P-087-0566994-00

PATIENT
  Age: 84 Year
  Sex: Male

DRUGS (9)
  1. LEUPLIN SR FOR INJECTION 11.25 MG [Suspect]
     Indication: PROSTATE CANCER STAGE III
     Route: 058
     Dates: start: 20070105, end: 20081017
  2. LEUPLIN SR FOR INJECTION 11.25 MG [Suspect]
     Dates: start: 20061206, end: 20061206
  3. CASODEX [Concomitant]
     Indication: PROSTATE CANCER STAGE III
     Route: 048
     Dates: start: 20061130, end: 20081017
  4. AMOBAN [Concomitant]
     Indication: DRUG USE FOR UNKNOWN INDICATION
     Route: 048
     Dates: end: 20070105
  5. MAGLAX [Concomitant]
     Indication: CONSTIPATION
     Route: 048
     Dates: start: 20070822, end: 20070913
  6. MAGLAX [Concomitant]
     Route: 048
     Dates: start: 20071011
  7. HARNAL D [Concomitant]
     Indication: BENIGN PROSTATIC HYPERPLASIA
     Route: 048
     Dates: start: 20071010, end: 20080409
  8. UBRETID [Concomitant]
     Indication: BENIGN PROSTATIC HYPERPLASIA
     Route: 048
     Dates: start: 20071010, end: 20080409
  9. UBRETID [Concomitant]
     Indication: NEUROGENIC BLADDER

REACTIONS (1)
  - PNEUMONIA ASPIRATION [None]
